FAERS Safety Report 22098198 (Version 2)
Quarter: 2023Q2

REPORT INFORMATION
  Report Type: Spontaneous
  Country: US (occurrence: US)
  Receive Date: 20230315
  Receipt Date: 20230413
  Transmission Date: 20230721
  Serious: Yes (Hospitalization, Other)
  Sender: FDA-Public Use
  Company Number: US-JNJFOC-20230320036

PATIENT
  Age: 90 Year
  Sex: Male

DRUGS (1)
  1. OPSUMIT [Suspect]
     Active Substance: MACITENTAN
     Indication: Product used for unknown indication
     Route: 048
     Dates: start: 20230104

REACTIONS (4)
  - Dependence on oxygen therapy [Unknown]
  - Dyspnoea [Unknown]
  - Hospitalisation [Unknown]
  - Mucosal disorder [Unknown]

NARRATIVE: CASE EVENT DATE: 20230301
